APPROVED DRUG PRODUCT: NIFEDIPINE
Active Ingredient: NIFEDIPINE
Strength: 10MG
Dosage Form/Route: CAPSULE;ORAL
Application: A073250 | Product #001 | TE Code: AB
Applicant: VELZEN PHARMA PVT LTD
Approved: Oct 8, 1991 | RLD: No | RS: No | Type: RX